FAERS Safety Report 8292667-5 (Version None)
Quarter: 2012Q2

REPORT INFORMATION
  Report Type: 
  Country: None (occurrence: None)
  Receive Date: 20120417
  Receipt Date: 20110628
  Transmission Date: 20120825
  Serious: No
  Sender: FDA-Public Use
  Company Number: US-ASTRAZENECA-2011SE20007

PATIENT
  Age: 60 Year
  Sex: Female

DRUGS (1)
  1. NEXIUM [Suspect]
     Route: 048
     Dates: start: 20010101

REACTIONS (7)
  - THROAT TIGHTNESS [None]
  - DRUG INEFFECTIVE [None]
  - DYSPNOEA [None]
  - DRUG DOSE OMISSION [None]
  - SPEECH DISORDER [None]
  - WRONG DRUG ADMINISTERED [None]
  - CHOKING SENSATION [None]
